FAERS Safety Report 4336195-8 (Version None)
Quarter: 2004Q2

REPORT INFORMATION
  Report Type: 
  Country: None (occurrence: None)
  Receive Date: 20040407
  Receipt Date: 20040324
  Transmission Date: 20050107
  Serious: Yes (Life-Threatening)
  Sender: FDA-Public Use
  Company Number: A06200400101

PATIENT
  Age: 49 Year
  Sex: Male

DRUGS (1)
  1. FASTURTEC - (RASBURICASE) - SOLUTION - 1.5 MG [Suspect]
     Indication: BLOOD URIC ACID INCREASED
     Dosage: 1.5 MG OD, INTRAVENOUS
     Route: 042
     Dates: start: 20040317, end: 20040317

REACTIONS (2)
  - CHILLS [None]
  - HYPOTENSION [None]
